FAERS Safety Report 6640042-9 (Version None)
Quarter: 2010Q1

REPORT INFORMATION
  Report Type: 
  Country: None (occurrence: None)
  Receive Date: 20100318
  Receipt Date: 20100308
  Transmission Date: 20100710
  Serious: Yes (Hospitalization)
  Sender: FDA-Public Use
  Company Number: JP-ABBOTT-10P-087-0632596-00

PATIENT
  Sex: Female

DRUGS (2)
  1. HUMIRA [Suspect]
     Indication: RHEUMATOID ARTHRITIS
     Route: 058
     Dates: start: 20091002, end: 20091028
  2. HUMIRA [Suspect]
     Route: 058
     Dates: start: 20091002, end: 20091028

REACTIONS (4)
  - COUGH [None]
  - RIGHT VENTRICULAR FAILURE [None]
  - SPUTUM INCREASED [None]
  - WEIGHT INCREASED [None]
